FAERS Safety Report 14082302 (Version 1)
Quarter: 2017Q4

REPORT INFORMATION
  Report Type: Spontaneous
  Country: US (occurrence: US)
  Receive Date: 20171012
  Receipt Date: 20171012
  Transmission Date: 20180321
  Serious: No
  Sender: FDA-Public Use
  Company Number: US-MYLANLABS-2017M1049996

PATIENT
  Sex: Female
  Weight: 91 kg

DRUGS (1)
  1. AZELASTINE. [Suspect]
     Active Substance: AZELASTINE HYDROCHLORIDE
     Indication: PHARYNGITIS
     Dosage: 2 SPRAY IN EACH NOSTRIL TWICE DAILY, BID, SOLUTION
     Route: 045
     Dates: start: 20170802

REACTIONS (3)
  - Headache [Not Recovered/Not Resolved]
  - Eye irritation [Recovered/Resolved]
  - Eye pain [Unknown]
